FAERS Safety Report 11761181 (Version 5)
Quarter: 2024Q4

REPORT INFORMATION
  Report Type: Spontaneous
  Country: US (occurrence: US)
  Receive Date: 20151120
  Receipt Date: 20241018
  Transmission Date: 20250114
  Serious: Yes (Other)
  Sender: SANOFI AVENTIS
  Company Number: US-SA-2015SA183094

PATIENT
  Age: 78 Year
  Sex: Male

DRUGS (6)
  1. TAXOTERE [Interacting]
     Active Substance: DOCETAXEL
     Indication: Prostate cancer metastatic
     Dosage: 75 MG/M2, Q3W  (TOTAL DOSE 134 MG)
  2. TAXOTERE [Interacting]
     Active Substance: DOCETAXEL
     Dosage: 30 MG/M2, QW (TOTAL DOSE 54 MG)
  3. CARVEDILOL [Interacting]
     Active Substance: CARVEDILOL
     Dosage: UNK
  4. DRONEDARONE [Interacting]
     Active Substance: DRONEDARONE
     Dosage: UNK
  5. BICALUTAMIDE [Interacting]
     Active Substance: BICALUTAMIDE
     Indication: Prostate cancer metastatic
     Dosage: UNK
  6. LEUPROLIDE ACETATE [Concomitant]
     Active Substance: LEUPROLIDE ACETATE
     Indication: Prostate cancer metastatic
     Dosage: UNK

REACTIONS (7)
  - Cholangitis sclerosing [Not Recovered/Not Resolved]
  - Drug interaction [Not Recovered/Not Resolved]
  - Biliary obstruction [Not Recovered/Not Resolved]
  - Biliary dilatation [Not Recovered/Not Resolved]
  - Cholestasis [Not Recovered/Not Resolved]
  - Bile duct stenosis [Unknown]
  - Biliary fibrosis [Not Recovered/Not Resolved]
